FAERS Safety Report 8956990 (Version 1)
Quarter: 2012Q4

REPORT INFORMATION
  Report Type: 
  Country: US (occurrence: US)
  Receive Date: 20121210
  Receipt Date: 20121210
  Transmission Date: 20130627
  Serious: Yes (Death, Hospitalization)
  Sender: FDA-Public Use
  Company Number: US-ROCHE-1149885

PATIENT
  Sex: Female

DRUGS (25)
  1. ACTEMRA [Suspect]
     Indication: RHEUMATOID ARTHRITIS
     Route: 042
  2. DELTASONE [Concomitant]
     Route: 065
  3. DELTASONE [Concomitant]
     Route: 065
  4. PLAQUENIL [Concomitant]
     Route: 065
  5. ARAVA [Concomitant]
     Route: 065
  6. CELEBREX [Concomitant]
     Route: 065
  7. PRINIVIL [Concomitant]
     Route: 065
  8. NORCO [Concomitant]
     Dosage: 1-2 tablets by mouth
     Route: 065
  9. FISH OIL [Concomitant]
     Route: 065
  10. PERCOCET [Concomitant]
     Route: 065
  11. ISOVUE-300 [Concomitant]
     Route: 042
  12. ISOVUE-300 [Concomitant]
     Route: 048
  13. ZOSYN [Concomitant]
     Route: 042
  14. VITAMIN K [Concomitant]
     Route: 065
  15. LACTOBACILLUS GG FORMULA [Concomitant]
     Route: 065
  16. FLAGYL [Concomitant]
     Route: 042
  17. DILAUDID [Concomitant]
     Route: 042
  18. ZOFRAN [Concomitant]
     Route: 042
  19. TYLENOL [Concomitant]
     Route: 048
  20. SENOKOT [Concomitant]
     Route: 048
  21. MILK OF MAGNESIA [Concomitant]
     Route: 048
  22. COLACE [Concomitant]
     Route: 048
  23. VANCOMYCIN [Concomitant]
     Route: 048
  24. NARCAN [Concomitant]
     Route: 042
  25. SOLU-MEDROL [Concomitant]
     Route: 042

REACTIONS (12)
  - Sepsis [Fatal]
  - Infection [Unknown]
  - Urinary tract infection [Unknown]
  - Acute hepatic failure [Unknown]
  - Hypotension [Unknown]
  - Pain [Unknown]
  - Respiratory failure [Unknown]
  - Renal failure acute [Unknown]
  - Clostridium difficile colitis [Unknown]
  - Anaemia [Unknown]
  - Haematuria [Unknown]
  - Pyuria [Unknown]
